FAERS Safety Report 26154692 (Version 1)
Quarter: 2025Q4

REPORT INFORMATION
  Report Type: Spontaneous
  Country: JP (occurrence: JP)
  Receive Date: 20251215
  Receipt Date: 20251215
  Transmission Date: 20260117
  Serious: Yes (Death, Hospitalization, Other)
  Sender: MERCK SHARP & DOHME LLC
  Company Number: JP-MSD-2305JPN001812J

PATIENT
  Age: 75 Year
  Sex: Female

DRUGS (20)
  1. KEYTRUDA [Suspect]
     Active Substance: PEMBROLIZUMAB
     Indication: Endometrial adenocarcinoma
     Route: 041
     Dates: start: 20230810, end: 202310
  2. KEYTRUDA [Suspect]
     Active Substance: PEMBROLIZUMAB
     Indication: Endometrial adenocarcinoma
     Route: 041
     Dates: start: 20230511, end: 20230511
  3. KEYTRUDA [Suspect]
     Active Substance: PEMBROLIZUMAB
     Indication: Endometrial adenocarcinoma
     Route: 041
     Dates: start: 20230629, end: 20230629
  4. LENVIMA [Suspect]
     Active Substance: LENVATINIB
     Indication: Endometrial adenocarcinoma
     Route: 048
     Dates: start: 20230511, end: 20230601
  5. LENVIMA [Suspect]
     Active Substance: LENVATINIB
     Indication: Endometrial adenocarcinoma
     Route: 048
     Dates: start: 20230608, end: 20230622
  6. LENVIMA [Suspect]
     Active Substance: LENVATINIB
     Indication: Endometrial adenocarcinoma
     Route: 048
     Dates: start: 20230629, end: 20230711
  7. LENVIMA [Suspect]
     Active Substance: LENVATINIB
     Indication: Endometrial adenocarcinoma
     Route: 048
     Dates: start: 20230810, end: 20230830
  8. LENVIMA [Suspect]
     Active Substance: LENVATINIB
     Indication: Endometrial adenocarcinoma
     Dosage: 5 DAYS ON AND 2 DAYS OFF
     Route: 048
     Dates: start: 20230831, end: 20230906
  9. ELDECALCITOL [Concomitant]
     Active Substance: ELDECALCITOL
     Route: 065
  10. CYMBALTA [Concomitant]
     Active Substance: DULOXETINE HYDROCHLORIDE
     Route: 065
  11. CELECOXIB [Concomitant]
     Active Substance: CELECOXIB
     Route: 065
  12. LANSOPRAZOLE [Concomitant]
     Active Substance: LANSOPRAZOLE
     Route: 065
  13. NIFEDIPINE [Concomitant]
     Active Substance: NIFEDIPINE
     Route: 065
     Dates: end: 2023
  14. NIFEDIPINE [Concomitant]
     Active Substance: NIFEDIPINE
     Dosage: LAST ADMIN DATE:2023
     Route: 065
     Dates: start: 20230518
  15. NIFEDIPINE [Concomitant]
     Active Substance: NIFEDIPINE
     Dosage: LAST ADMIN DATE:2023
     Route: 065
     Dates: start: 20230612
  16. NIFEDIPINE [Concomitant]
     Active Substance: NIFEDIPINE
     Route: 065
     Dates: start: 2023, end: 2023
  17. NIFEDIPINE [Concomitant]
     Active Substance: NIFEDIPINE
     Route: 065
     Dates: start: 20230921
  18. IRBESARTAN [Concomitant]
     Active Substance: IRBESARTAN
     Route: 065
  19. ATENOLOL [Concomitant]
     Active Substance: ATENOLOL
     Route: 065
  20. ELIQUIS [Concomitant]
     Active Substance: APIXABAN
     Indication: Pulmonary embolism
     Route: 065

REACTIONS (12)
  - Malignant neoplasm progression [Fatal]
  - Hyperkalaemia [Unknown]
  - Hypothyroidism [Not Recovered/Not Resolved]
  - Tooth extraction [Unknown]
  - Interstitial lung disease [Recovered/Resolved]
  - Hypophagia [Unknown]
  - Pyrexia [Recovered/Resolved]
  - Malaise [Recovered/Resolved]
  - Hypertension [Unknown]
  - Immune-mediated enterocolitis [Unknown]
  - Bacterial infection [Unknown]
  - Therapy partial responder [Unknown]

NARRATIVE: CASE EVENT DATE: 20230513
